FAERS Safety Report 5684023-0 (Version None)
Quarter: 2008Q1

REPORT INFORMATION
  Report Type: 
  Country: None (occurrence: None)
  Receive Date: 20080328
  Receipt Date: 20080318
  Transmission Date: 20080703
  Serious: Yes (Other)
  Sender: FDA-Public Use
  Company Number: ES-ABBOTT-08P-144-0436898-01

PATIENT
  Sex: Female
  Weight: 61 kg

DRUGS (2)
  1. KALETRA [Suspect]
     Indication: HIV INFECTION
     Dosage: 800/200 MG
     Route: 048
     Dates: start: 20060629
  2. FERROUS SULFATE TAB [Concomitant]
     Indication: ANAEMIA
     Dates: start: 20060211

REACTIONS (1)
  - BLIGHTED OVUM [None]
